FAERS Safety Report 8408785 (Version 3)
Quarter: 2013Q2

REPORT INFORMATION
  Report Type: Spontaneous
  Country: US (occurrence: US)
  Receive Date: 20120216
  Receipt Date: 20130524
  Transmission Date: 20140414
  Serious: Yes (Other)
  Sender: FDA-Public Use
  Company Number: US-SANOFI-AVENTIS-2012SA008111

PATIENT
  Age: 48 Year
  Sex: Female

DRUGS (1)
  1. GILENYA (FTY) CAPSULE, 0.5MG [Suspect]
     Route: 048

REACTIONS (4)
  - HALLUCINATION [Not Recovered/Not Resolved]
  - CONFUSIONAL STATE [Unknown]
  - CONDITION AGGRAVATED [Not Recovered/Not Resolved]
  - OFF LABEL USE [Not Recovered/Not Resolved]
